FAERS Safety Report 20552561 (Version 2)
Quarter: 2022Q2

REPORT INFORMATION
  Report Type: Spontaneous
  Country: US (occurrence: None)
  Receive Date: 20220304
  Receipt Date: 20220411
  Transmission Date: 20220721
  Serious: No
  Sender: FDA-Public Use
  Company Number: 2022A066838

PATIENT
  Sex: Female
  Weight: 58.5 kg

DRUGS (2)
  1. IMFINZI [Suspect]
     Active Substance: DURVALUMAB
     Indication: Neoplasm malignant
     Dosage: EVERY TWO WEEKS FOR 24 SESSIONS
     Route: 042
     Dates: start: 202005
  2. IMFINZI [Suspect]
     Active Substance: DURVALUMAB
     Indication: Neoplasm malignant
     Dosage: EVERY TWO WEEKS FOR 24 SESSIONS
     Route: 042
     Dates: start: 20210505

REACTIONS (4)
  - Arthritis [Not Recovered/Not Resolved]
  - Joint effusion [Not Recovered/Not Resolved]
  - Gait inability [Unknown]
  - Myalgia [Not Recovered/Not Resolved]
